FAERS Safety Report 6572207-9 (Version None)
Quarter: 2010Q1

REPORT INFORMATION
  Report Type: 
  Country: None (occurrence: None)
  Receive Date: 20100205
  Receipt Date: 20100125
  Transmission Date: 20100710
  Serious: Yes (Other)
  Sender: FDA-Public Use
  Company Number: US-WATSON-2010-01028

PATIENT
  Age: 41 Year
  Sex: Male

DRUGS (2)
  1. TESTOSTERONE ENANTHATE [Suspect]
     Indication: DRUG ABUSE
     Dosage: UNK
  2. INSULIN GROWTH FACTOR [Suspect]
     Indication: DRUG ABUSE

REACTIONS (1)
  - CARDIOMYOPATHY [None]
